FAERS Safety Report 21613876 (Version 1)
Quarter: 2022Q4

REPORT INFORMATION
  Report Type: Spontaneous
  Country: DE (occurrence: DE)
  Receive Date: 20221118
  Receipt Date: 20221118
  Transmission Date: 20230112
  Serious: Yes (Other)
  Sender: FDA-Public Use
  Company Number: None

PATIENT
  Age: 49 Year
  Sex: Male
  Weight: 97 kg

DRUGS (1)
  1. ESCITALOPRAM [Suspect]
     Active Substance: ESCITALOPRAM OXALATE
     Indication: Depression
     Dosage: 20MG
     Route: 048
     Dates: start: 20180601, end: 20221101

REACTIONS (3)
  - Alopecia [Not Recovered/Not Resolved]
  - Dysuria [Unknown]
  - Arrhythmia [Not Recovered/Not Resolved]
